FAERS Safety Report 24138772 (Version 2)
Quarter: 2024Q3

REPORT INFORMATION
  Report Type: Report from Study
  Country: US (occurrence: US)
  Receive Date: 20240725
  Receipt Date: 20240802
  Transmission Date: 20241017
  Serious: Yes (Other)
  Sender: ABBVIE
  Company Number: US-ABBVIE-5850155

PATIENT
  Sex: Male

DRUGS (1)
  1. RINVOQ [Suspect]
     Active Substance: UPADACITINIB
     Indication: Product used for unknown indication
     Dosage: STRENGTH 45 MILLIGRAM
     Route: 048

REACTIONS (4)
  - Bone fragmentation [Unknown]
  - Arthritis [Unknown]
  - Alcohol use [Unknown]
  - Autoimmune disorder [Unknown]
